FAERS Safety Report 16767332 (Version 1)
Quarter: 2019Q3

REPORT INFORMATION
  Report Type: Spontaneous
  Country: FR (occurrence: FR)
  Receive Date: 20190903
  Receipt Date: 20190903
  Transmission Date: 20191005
  Serious: Yes (Congenital Anomaly)
  Sender: FDA-Public Use
  Company Number: FR-MYLANLABS-2019M1081493

PATIENT
  Sex: Female
  Weight: 3 kg

DRUGS (3)
  1. SERESTA [Suspect]
     Active Substance: OXAZEPAM
     Indication: ANXIETY
     Dosage: 20 MILLIGRAM
     Route: 064
     Dates: start: 201712, end: 20190104
  2. ARIPIPRAZOLE. [Suspect]
     Active Substance: ARIPIPRAZOLE
     Indication: BIPOLAR DISORDER
     Dosage: 20 MILLIGRAM
     Route: 064
     Dates: start: 201712, end: 20190104
  3. OLANZAPINE. [Suspect]
     Active Substance: OLANZAPINE
     Indication: BIPOLAR DISORDER
     Dosage: SI BESOIN
     Route: 064
     Dates: start: 201712, end: 20190104

REACTIONS (2)
  - Cleft palate [Recovered/Resolved with Sequelae]
  - Foetal exposure during pregnancy [Recovered/Resolved]

NARRATIVE: CASE EVENT DATE: 20190104
